FAERS Safety Report 9106066 (Version 1)
Quarter: 2013Q1

REPORT INFORMATION
  Report Type: Spontaneous
  Country: CH (occurrence: CH)
  Receive Date: 20130220
  Receipt Date: 20130220
  Transmission Date: 20140127
  Serious: Yes (Hospitalization, Other)
  Sender: FDA-Public Use
  Company Number: PHHY2013CH014862

PATIENT
  Age: 69 Year
  Sex: Female

DRUGS (2)
  1. METRONIDAZOLE [Suspect]
     Dosage: 500 MG, TID
  2. CIPROFLOXACIN [Concomitant]
     Dosage: 500 MG, BID
     Route: 048

REACTIONS (11)
  - Encephalopathy [Recovered/Resolved]
  - VIIth nerve paralysis [Recovered/Resolved]
  - Dizziness [Recovered/Resolved]
  - Dysarthria [Recovered/Resolved]
  - Balance disorder [Recovered/Resolved]
  - Facial paresis [Recovered/Resolved]
  - Facial asymmetry [Recovered/Resolved]
  - Nystagmus [Recovered/Resolved]
  - Cerebellar ataxia [Recovered/Resolved]
  - Leukocytosis [Recovered/Resolved]
  - Central nervous system lesion [Recovered/Resolved]
